FAERS Safety Report 12893921 (Version 1)
Quarter: 2016Q4

REPORT INFORMATION
  Report Type: Spontaneous
  Country: CN (occurrence: CN)
  Receive Date: 20161028
  Receipt Date: 20161028
  Transmission Date: 20170207
  Serious: Yes (Other)
  Sender: FDA-Public Use
  Company Number: CN-NOVOPROD-516212

PATIENT
  Age: 90 Year
  Sex: Female
  Weight: 60 kg

DRUGS (1)
  1. NOVONORM [Suspect]
     Active Substance: REPAGLINIDE
     Indication: TYPE 1 DIABETES MELLITUS
     Dosage: 1 MG, TID
     Route: 048
     Dates: start: 20160228, end: 20160727

REACTIONS (2)
  - Hypoglycaemia [Recovering/Resolving]
  - Loss of consciousness [Recovering/Resolving]

NARRATIVE: CASE EVENT DATE: 20160727
